FAERS Safety Report 8163233-7 (Version None)
Quarter: 2012Q1

REPORT INFORMATION
  Report Type: 
  Country: None (occurrence: None)
  Receive Date: 20120221
  Receipt Date: 20120210
  Transmission Date: 20120608
  Serious: Yes (Death, Life-Threatening, Hospitalization)
  Sender: FDA-Public Use
  Company Number: 2011075772

PATIENT
  Age: 65 Year
  Sex: Male

DRUGS (7)
  1. ONDANSETRON [Suspect]
     Dosage: 8 MG, ORAL
     Route: 048
  2. DALTEPARIN SODIUM [Suspect]
     Indication: LUNG NEOPLASM MALIGNANT
     Dates: start: 20101220, end: 20110225
  3. CISPLATIN [Suspect]
     Dosage: INTRAVENOUS
     Route: 042
     Dates: start: 20101221, end: 20110225
  4. TAZOCIN (PIPERACILLIN SODIUM, TAZOBACTAM SODIUM) [Concomitant]
  5. PEMETREXED DISODIUM [Suspect]
     Dosage: INTRAVENOUS
     Route: 042
     Dates: start: 20101221, end: 20110225
  6. ACETAMINOPHEN [Concomitant]
  7. APREPITANT [Suspect]
     Dosage: INTRAVENOUS
     Route: 042
     Dates: start: 20110225, end: 20110225

REACTIONS (4)
  - CONSTIPATION [None]
  - INFECTIOUS PERITONITIS [None]
  - LARGE INTESTINE PERFORATION [None]
  - LUNG CANCER METASTATIC [None]
